FAERS Safety Report 7835886-1 (Version None)
Quarter: 2011Q4

REPORT INFORMATION
  Report Type: 
  Country: None (occurrence: None)
  Receive Date: 20111024
  Receipt Date: 20101115
  Transmission Date: 20120403
  Serious: No
  Sender: FDA-Public Use
  Company Number: US-ABBOTT-10P-163-0685541-00

PATIENT

DRUGS (1)
  1. LUPRON [Suspect]
     Indication: PRODUCT USED FOR UNKNOWN INDICATION

REACTIONS (6)
  - DECREASED APPETITE [None]
  - HEADACHE [None]
  - FEELING HOT [None]
  - HEART RATE INCREASED [None]
  - MUSCLE SPASMS [None]
  - BLOOD POTASSIUM DECREASED [None]
